FAERS Safety Report 21963211 (Version 1)
Quarter: 2023Q1

REPORT INFORMATION
  Report Type: Spontaneous
  Country: US (occurrence: US)
  Receive Date: 20230207
  Receipt Date: 20230207
  Transmission Date: 20230418
  Serious: No
  Sender: FDA-Public Use
  Company Number: US-AMRYT PHARMACEUTICALS DAC-AEGR006221

PATIENT
  Sex: Male
  Weight: 79.093 kg

DRUGS (1)
  1. MYALEPT [Suspect]
     Active Substance: METRELEPTIN
     Indication: Lipodystrophy acquired
     Dosage: 5 MILLIGRAM (1 ML OR 100 UNITS)
     Route: 058
     Dates: start: 20180714

REACTIONS (3)
  - Post-acute COVID-19 syndrome [Unknown]
  - Decreased appetite [Unknown]
  - Weight decreased [Unknown]
